FAERS Safety Report 5903236-3 (Version None)
Quarter: 2008Q3

REPORT INFORMATION
  Report Type: 
  Country: None (occurrence: None)
  Receive Date: 20080926
  Receipt Date: 20080918
  Transmission Date: 20090109
  Serious: Yes (Other)
  Sender: FDA-Public Use
  Company Number: 2008SP019378

PATIENT
  Sex: Male

DRUGS (4)
  1. CLARITIN [Suspect]
     Indication: ASTHMA
     Dosage: 10 MG;PO
     Route: 048
     Dates: end: 20080707
  2. CLARITIN [Suspect]
     Indication: OFF LABEL USE
     Dosage: 10 MG;PO
     Route: 048
     Dates: end: 20080707
  3. CLARITIN [Suspect]
     Indication: ASTHMA
     Dosage: 10 MG;PO
     Route: 048
     Dates: start: 20080903, end: 20080917
  4. CLARITIN [Suspect]
     Indication: OFF LABEL USE
     Dosage: 10 MG;PO
     Route: 048
     Dates: start: 20080903, end: 20080917

REACTIONS (2)
  - ASTHMA [None]
  - RHINORRHOEA [None]
